FAERS Safety Report 7639233-X (Version None)
Quarter: 2011Q3

REPORT INFORMATION
  Report Type: 
  Country: None (occurrence: None)
  Receive Date: 20110727
  Receipt Date: 20110719
  Transmission Date: 20111222
  Serious: Yes (Other)
  Sender: FDA-Public Use
  Company Number: ES-JNJFOC-20110703779

PATIENT
  Age: 6 Decade
  Sex: Female

DRUGS (3)
  1. DURAGESIC-12 [Suspect]
     Indication: BACK PAIN
     Route: 062
  2. DURAGESIC-12 [Suspect]
     Route: 062
  3. DURAGESIC-12 [Suspect]
     Route: 062

REACTIONS (7)
  - DRUG INEFFECTIVE [None]
  - PRODUCT QUALITY ISSUE [None]
  - UNDERDOSE [None]
  - IMMOBILE [None]
  - PAIN [None]
  - DEPRESSION [None]
  - WITHDRAWAL SYNDROME [None]
